FAERS Safety Report 4372937-3 (Version None)
Quarter: 2004Q2

REPORT INFORMATION
  Report Type: 
  Country: None (occurrence: None)
  Receive Date: 20040608
  Receipt Date: 20040527
  Transmission Date: 20050107
  Serious: Yes (Death)
  Sender: FDA-Public Use
  Company Number: JP-BRISTOL-MYERS SQUIBB COMPANY-12599304

PATIENT
  Sex: Male

DRUGS (4)
  1. TAXOL [Suspect]
     Indication: GASTRIC CANCER
     Route: 042
     Dates: start: 20021204, end: 20021204
  2. DECADRON [Concomitant]
  3. ZANTAC [Concomitant]
  4. VENA [Concomitant]

REACTIONS (1)
  - INTERSTITIAL LUNG DISEASE [None]
